FAERS Safety Report 21127221 (Version 1)
Quarter: 2022Q3

REPORT INFORMATION
  Report Type: Spontaneous
  Country: US (occurrence: US)
  Receive Date: 20220725
  Receipt Date: 20220725
  Transmission Date: 20221026
  Serious: No
  Sender: FDA-Public Use
  Company Number: US-ABBVIE-21K-163-4099934-00

PATIENT
  Sex: Female
  Weight: 53.1 kg

DRUGS (4)
  1. SYNTHROID [Suspect]
     Active Substance: LEVOTHYROXINE SODIUM
     Indication: Product used for unknown indication
     Dosage: 0.88 MG
     Route: 048
     Dates: start: 202105
  2. MYCAPSSA [Suspect]
     Active Substance: OCTREOTIDE
     Indication: Acromegaly
     Dosage: DELAYED RELEASE
     Route: 048
     Dates: start: 20210502
  3. ADVAIR HFA [Concomitant]
     Active Substance: FLUTICASONE PROPIONATE\SALMETEROL XINAFOATE
     Indication: Product used for unknown indication
     Dosage: 100/50
  4. FLONASE [Concomitant]
     Active Substance: FLUTICASONE PROPIONATE
     Indication: Product used for unknown indication

REACTIONS (6)
  - Blood corticotrophin decreased [Unknown]
  - Feeling abnormal [Unknown]
  - Peripheral swelling [Recovering/Resolving]
  - Insomnia [Recovering/Resolving]
  - Anxiety [Recovering/Resolving]
  - Weight increased [Recovering/Resolving]

NARRATIVE: CASE EVENT DATE: 20210101
